FAERS Safety Report 24067806 (Version 2)
Quarter: 2024Q3

REPORT INFORMATION
  Report Type: Spontaneous
  Country: SE (occurrence: SE)
  Receive Date: 20240710
  Receipt Date: 20240830
  Transmission Date: 20241017
  Serious: Yes (Other)
  Sender: NOVO NORDISK
  Company Number: SE-NOVOPROD-1241158

PATIENT
  Age: 67 Year
  Sex: Male

DRUGS (1)
  1. FIASP [Suspect]
     Active Substance: INSULIN ASPART
     Indication: Diabetes mellitus
     Dosage: UNK

REACTIONS (4)
  - Blood glucose decreased [Recovered/Resolved]
  - Device loosening [Unknown]
  - Incorrect dose administered by device [Unknown]
  - Device dislocation [Unknown]

NARRATIVE: CASE EVENT DATE: 20240615
